FAERS Safety Report 21884154 (Version 1)
Quarter: 2023Q1

REPORT INFORMATION
  Report Type: Spontaneous
  Country: US (occurrence: US)
  Receive Date: 20230119
  Receipt Date: 20230119
  Transmission Date: 20230418
  Serious: Yes (Hospitalization)
  Sender: FDA-Public Use
  Company Number: US-drreddys-SPO/USA/23/0159546

PATIENT
  Age: 73 Year
  Sex: Female

DRUGS (9)
  1. LENALIDOMIDE [Suspect]
     Active Substance: LENALIDOMIDE
     Indication: Plasma cell myeloma
     Dosage: TAKE 1 CAPSULE BY MOUTH ONCE DAILY FOR 21 DAYS ON THEN 7 DAYS OFF OF EVERY 28 DAY CYCLE
     Route: 048
  2. CITALOPRAM [Concomitant]
     Active Substance: CITALOPRAM HYDROBROMIDE
     Indication: Product used for unknown indication
  3. OMEPRAZOLE [Concomitant]
     Active Substance: OMEPRAZOLE
     Indication: Product used for unknown indication
  4. ADVAIR DISKU AEP 100-50MC [Concomitant]
     Indication: Product used for unknown indication
     Dosage: 100-50MC
  5. BREO ELLIPTA AEP 100-25MC [Concomitant]
     Indication: Product used for unknown indication
     Dosage: 100-25MC
  6. DARZALEX SOL 400MG/20ML [Concomitant]
     Indication: Product used for unknown indication
     Dosage: 400MG/20ML
  7. DEXAMETHASONE TAB 4MG [Concomitant]
     Indication: Product used for unknown indication
  8. GABAPENTIN CAP 400MG [Concomitant]
     Indication: Product used for unknown indication
  9. PREDNISONE [Concomitant]
     Active Substance: PREDNISONE
     Indication: Product used for unknown indication

REACTIONS (1)
  - Hospitalisation [Unknown]
